FAERS Safety Report 5780920-6 (Version None)
Quarter: 2008Q2

REPORT INFORMATION
  Report Type: 
  Country: None (occurrence: None)
  Receive Date: 20080618
  Receipt Date: 20080610
  Transmission Date: 20081010
  Serious: Yes (Hospitalization)
  Sender: FDA-Public Use
  Company Number: 163-20785-08060633

PATIENT
  Age: 79 Year
  Sex: Female

DRUGS (10)
  1. THALOMID [Suspect]
     Indication: MULTIPLE MYELOMA
     Dosage: 100 MG, 1 IN 1 D, ORAL
     Route: 048
     Dates: start: 20080401, end: 20080414
  2. DEXAMETHASONE TAB [Concomitant]
  3. ASPIRIN [Concomitant]
  4. CALCIUM WITH VITAMIN D (CALCIUM WITH VITAMIN D) [Concomitant]
  5. COUMADIN [Concomitant]
  6. ELAVIL [Concomitant]
  7. PRILOSEC [Concomitant]
  8. VYTORIN [Concomitant]
  9. PERCOCET [Concomitant]
  10. VITAMIN E [Concomitant]

REACTIONS (1)
  - CHOLESTASIS [None]
